FAERS Safety Report 7955666-6 (Version None)
Quarter: 2011Q4

REPORT INFORMATION
  Report Type: 
  Country: None (occurrence: None)
  Receive Date: 20111204
  Receipt Date: 20111003
  Transmission Date: 20120403
  Serious: No
  Sender: FDA-Public Use
  Company Number: US-ALLERGAN-1113051US

PATIENT
  Age: 35 Year
  Sex: Female

DRUGS (1)
  1. ACZONE [Suspect]
     Indication: ACNE
     Dosage: UNK
     Route: 061
     Dates: start: 20110928, end: 20110930

REACTIONS (1)
  - DRUG INEFFECTIVE [None]
